FAERS Safety Report 22298380 (Version 1)
Quarter: 2023Q2

REPORT INFORMATION
  Report Type: Spontaneous
  Country: US (occurrence: US)
  Receive Date: 20230509
  Receipt Date: 20230509
  Transmission Date: 20230722
  Serious: No
  Sender: FDA-Public Use
  Company Number: US-MICRO LABS LIMITED-ML2023-02023

PATIENT
  Age: 73 Year
  Sex: Female

DRUGS (1)
  1. DORZOLAMIDE [Suspect]
     Active Substance: DORZOLAMIDE
     Indication: Glaucoma
     Dosage: PATIENT WAS USING THIS FROM LAST ONE YEAR
     Route: 047

REACTIONS (2)
  - Eye irritation [Recovered/Resolved]
  - Product odour abnormal [Unknown]
